FAERS Safety Report 9670302 (Version 1)
Quarter: 2013Q4

REPORT INFORMATION
  Report Type: Spontaneous
  Country: FR (occurrence: FR)
  Receive Date: 20131105
  Receipt Date: 20131105
  Transmission Date: 20140711
  Serious: Yes (Other)
  Sender: FDA-Public Use
  Company Number: FR-PFIZER INC-2013312650

PATIENT
  Age: 55 Year
  Sex: Female

DRUGS (2)
  1. EFFEXOR LP [Suspect]
     Dosage: 37.5 MG, ONCE A DAY IN THE EVENING
  2. APROVEL [Interacting]
     Indication: HYPERTENSION
     Dosage: 1 DF, ONCE A DAY IN THE MORNING

REACTIONS (3)
  - Drug interaction [Unknown]
  - Total lung capacity decreased [Unknown]
  - Chest pain [Unknown]
